FAERS Safety Report 7329371-3 (Version None)
Quarter: 2011Q1

REPORT INFORMATION
  Report Type: 
  Country: None (occurrence: None)
  Receive Date: 20110218
  Receipt Date: 20110208
  Transmission Date: 20110831
  Serious: Yes (Other)
  Sender: FDA-Public Use
  Company Number: 027115

PATIENT
  Age: 60 Year
  Sex: Male

DRUGS (1)
  1. KEPPRA [Suspect]
     Dosage: (2250 MG, 1000 MG IN THE MORNING AND 1250 AT NIGHT)
     Dates: start: 20100101

REACTIONS (2)
  - CONVULSION [None]
  - UNRESPONSIVE TO STIMULI [None]
